FAERS Safety Report 16819029 (Version 1)
Quarter: 2019Q3

REPORT INFORMATION
  Report Type: Spontaneous
  Country: GB (occurrence: GB)
  Receive Date: 20190917
  Receipt Date: 20190917
  Transmission Date: 20191005
  Serious: Yes (Other)
  Sender: FDA-Public Use
  Company Number: GB-MYLANLABS-2019M1086889

PATIENT
  Age: 29 Year
  Sex: Female
  Weight: 92.4 kg

DRUGS (3)
  1. RANITIDINE. [Suspect]
     Active Substance: RANITIDINE
     Indication: CAESAREAN SECTION
     Dosage: 150 MILLIGRAM
     Route: 048
     Dates: start: 20190331, end: 20190401
  2. PREGNACARE ORIGINAL                /09637101/ [Concomitant]
     Dosage: 1 DOSAGE FORM, QD
  3. ACETYLSALICYLIC ACID [Concomitant]
     Active Substance: ASPIRIN
     Dosage: 75 MILLIGRAM, QD

REACTIONS (3)
  - Migraine [Not Recovered/Not Resolved]
  - Vomiting [Not Recovered/Not Resolved]
  - Maternal exposure during pregnancy [Recovered/Resolved]

NARRATIVE: CASE EVENT DATE: 20190401
